FAERS Safety Report 9134607 (Version 4)
Quarter: 2013Q2

REPORT INFORMATION
  Report Type: Spontaneous
  Country: JP (occurrence: JP)
  Receive Date: 20130304
  Receipt Date: 20130614
  Transmission Date: 20140414
  Serious: Yes (Death, Hospitalization, Other)
  Sender: FDA-Public Use
  Company Number: PHHY2013JP020173

PATIENT
  Age: 72 Year
  Sex: Male
  Weight: 61 kg

DRUGS (5)
  1. NEORAL [Suspect]
     Indication: APLASTIC ANAEMIA
     Dosage: 350 MG, DAILY
     Route: 048
  2. NEORAL [Suspect]
     Dosage: 200 MG, DAILY
     Dates: start: 20130118, end: 20130129
  3. NEORAL [Suspect]
     Dosage: 100 MG, IN TWO DIVIDED DOSES; DAILY
     Route: 048
     Dates: start: 20130130, end: 20130227
  4. SANDIMMUN [Suspect]
     Indication: APLASTIC ANAEMIA
     Dosage: 35 MG, DAILY
     Route: 041
     Dates: start: 20130228
  5. BAKTAR [Concomitant]
     Indication: INFECTION PROPHYLAXIS
     Dosage: 1 DF, UNK
     Dates: start: 201301, end: 20130212

REACTIONS (10)
  - Sepsis [Fatal]
  - Multi-organ failure [Fatal]
  - Aplastic anaemia [Unknown]
  - Condition aggravated [Unknown]
  - Pulmonary mycosis [Unknown]
  - Febrile neutropenia [Unknown]
  - Blood creatinine increased [Unknown]
  - Aspartate aminotransferase [Unknown]
  - Drug ineffective [Unknown]
  - Oral administration complication [Unknown]
